FAERS Safety Report 11164781 (Version 3)
Quarter: 2015Q3

REPORT INFORMATION
  Report Type: Spontaneous
  Country: US (occurrence: US)
  Receive Date: 20150604
  Receipt Date: 20150730
  Transmission Date: 20151125
  Serious: No
  Sender: FDA-Public Use
  Company Number: US-PFIZER INC-2015179939

PATIENT
  Age: 67 Year
  Sex: Male
  Weight: 84 kg

DRUGS (5)
  1. VITAMINS /00067501/ [Concomitant]
     Active Substance: VITAMINS
     Dosage: UNK
     Dates: start: 201409
  2. ATORVASTATIN CALCIUM. [Suspect]
     Active Substance: ATORVASTATIN CALCIUM
     Indication: TRANSIENT ISCHAEMIC ATTACK
  3. ASPIRIN /00002701/ [Concomitant]
     Active Substance: ASPIRIN
     Indication: CEREBROVASCULAR ACCIDENT
     Dosage: 325 QD
     Dates: start: 201409
  4. ATORVASTATIN CALCIUM. [Suspect]
     Active Substance: ATORVASTATIN CALCIUM
     Indication: BLOOD CHOLESTEROL INCREASED
     Dosage: 80 MG, 1X/DAY
     Route: 048
     Dates: start: 201409, end: 201507
  5. ATORVASTATIN CALCIUM. [Suspect]
     Active Substance: ATORVASTATIN CALCIUM
     Indication: CAROTID ARTERIOSCLEROSIS
     Dosage: UNK

REACTIONS (7)
  - Cough [Recovered/Resolved]
  - Rhinorrhoea [Recovered/Resolved]
  - Dysphonia [Not Recovered/Not Resolved]
  - Oropharyngeal pain [Recovered/Resolved]
  - Sneezing [Recovered/Resolved]
  - Nasopharyngitis [Unknown]
  - Sinus congestion [Recovered/Resolved]

NARRATIVE: CASE EVENT DATE: 201409
